FAERS Safety Report 24296651 (Version 2)
Quarter: 2024Q4

REPORT INFORMATION
  Report Type: Spontaneous
  Country: US (occurrence: US)
  Receive Date: 20240909
  Receipt Date: 20241029
  Transmission Date: 20250114
  Serious: No
  Sender: ALEXION PHARMACEUTICALS
  Company Number: 2024A196304

PATIENT
  Age: 63 Year

DRUGS (2)
  1. TEZSPIRE [Suspect]
     Active Substance: TEZEPELUMAB-EKKO
     Dosage: 210 MILLIGRAM, UNK
  2. TEZSPIRE [Suspect]
     Active Substance: TEZEPELUMAB-EKKO
     Dosage: 210 MILLIGRAM, UNK

REACTIONS (3)
  - Anxiety [Unknown]
  - Drug dose omission by device [Unknown]
  - Device leakage [Unknown]
